FAERS Safety Report 17906850 (Version 3)
Quarter: 2020Q3

REPORT INFORMATION
  Report Type: Spontaneous
  Country: BR (occurrence: BR)
  Receive Date: 20200616
  Receipt Date: 20200805
  Transmission Date: 20201103
  Serious: Yes (Other)
  Sender: FDA-Public Use
  Company Number: BR-AMGEN-BRASP2012016632

PATIENT
  Age: 58 Year
  Sex: Female

DRUGS (3)
  1. ENBREL [Suspect]
     Active Substance: ETANERCEPT
     Dosage: UNK
     Route: 065
  2. HYDROXYCHLOROQUINE [Concomitant]
     Active Substance: HYDROXYCHLOROQUINE
     Dosage: UNK
     Dates: end: 2016
  3. ENBREL [Suspect]
     Active Substance: ETANERCEPT
     Indication: RHEUMATOID ARTHRITIS
     Dosage: 25 MG, 2X/WEEK (MONDAY AND FRIDAY)
     Route: 058
     Dates: start: 200507

REACTIONS (10)
  - Liver disorder [Unknown]
  - Malaise [Unknown]
  - Peripheral swelling [Unknown]
  - Varicose vein [Not Recovered/Not Resolved]
  - Erythema [Unknown]
  - Sensitivity to weather change [Unknown]
  - Pain [Unknown]
  - Toxicity to various agents [Unknown]
  - Joint swelling [Unknown]
  - Feeling abnormal [Unknown]

NARRATIVE: CASE EVENT DATE: 20200609
